FAERS Safety Report 13831218 (Version 1)
Quarter: 2017Q3

REPORT INFORMATION
  Report Type: Spontaneous
  Country: KW (occurrence: KW)
  Receive Date: 20170803
  Receipt Date: 20170803
  Transmission Date: 20171127
  Serious: Yes (Other)
  Sender: FDA-Public Use
  Company Number: KW-MYLANLABS-2017M1047665

PATIENT

DRUGS (10)
  1. ARIPIPRAZOLE. [Suspect]
     Active Substance: ARIPIPRAZOLE
     Indication: AUTISM SPECTRUM DISORDER
     Dosage: 10MG/DAY FOR 2 MONTHS
     Route: 065
  2. CLONIDINE. [Suspect]
     Active Substance: CLONIDINE
     Indication: AUTISM SPECTRUM DISORDER
     Dosage: 300MICROG/DAY FOR 3WEEKS
     Route: 065
  3. ARIPIPRAZOLE. [Suspect]
     Active Substance: ARIPIPRAZOLE
     Dosage: 15MG/DAY FOR 2WEEKS
     Route: 065
  4. ARIPIPRAZOLE. [Suspect]
     Active Substance: ARIPIPRAZOLE
     Dosage: 15MG/DAY FOR 1 MONTH
     Route: 065
  5. CLONAZEPAM. [Suspect]
     Active Substance: CLONAZEPAM
     Indication: AUTISM SPECTRUM DISORDER
     Dosage: 1MG/DAY FOR 3 WEEKS
     Route: 065
  6. RISPERIDONE. [Suspect]
     Active Substance: RISPERIDONE
     Indication: AUTISM SPECTRUM DISORDER
     Dosage: 3MG/DAY FOR 2 MONTHS
     Route: 065
  7. ARIPIPRAZOLE. [Suspect]
     Active Substance: ARIPIPRAZOLE
     Dosage: 15MG/DAY FOR 3WEEKS
     Route: 065
  8. NALTREXONE [Suspect]
     Active Substance: NALTREXONE
     Indication: AUTISM SPECTRUM DISORDER
     Dosage: FOR 2 WEEKS
     Route: 065
  9. VALPROIC ACID. [Suspect]
     Active Substance: VALPROIC ACID
     Indication: AUTISM SPECTRUM DISORDER
     Dosage: FOR 1 MONTH
     Route: 065
  10. LITHIUM. [Suspect]
     Active Substance: LITHIUM
     Indication: AUTISM SPECTRUM DISORDER
     Dosage: 800MG/DAY FOR 3 WEEKS
     Route: 065

REACTIONS (7)
  - Tremor [Recovered/Resolved]
  - Liver function test increased [Recovered/Resolved]
  - Muscle rigidity [Recovered/Resolved]
  - Bradycardia [Recovered/Resolved]
  - Blood prolactin increased [Recovered/Resolved]
  - Salivary hypersecretion [Recovered/Resolved]
  - Weight increased [Recovered/Resolved]
